FAERS Safety Report 6530875-1 (Version None)
Quarter: 2010Q1

REPORT INFORMATION
  Report Type: 
  Country: None (occurrence: None)
  Receive Date: 20100108
  Receipt Date: 20090618
  Transmission Date: 20100710
  Serious: No
  Sender: FDA-Public Use
  Company Number: A0782339A

PATIENT
  Age: 54 Year
  Sex: Male

DRUGS (2)
  1. LOVAZA [Suspect]
     Dosage: 2CAPL TWICE PER DAY
     Route: 048
     Dates: start: 20080901
  2. NIASPAN [Concomitant]

REACTIONS (3)
  - ERYTHEMA [None]
  - PRODUCT QUALITY ISSUE [None]
  - SWELLING FACE [None]
